FAERS Safety Report 23865229 (Version 2)
Quarter: 2024Q4

REPORT INFORMATION
  Report Type: Spontaneous
  Country: US (occurrence: US)
  Receive Date: 20240517
  Receipt Date: 20241111
  Transmission Date: 20250114
  Serious: No
  Sender: SANOFI AVENTIS
  Company Number: US-SA-SAC20240509001151

PATIENT
  Age: 3 Year
  Sex: Female

DRUGS (1)
  1. DUPIXENT [Suspect]
     Active Substance: DUPILUMAB
     Indication: Eczema
     Dosage: 200 MG, Q4W
     Route: 058
     Dates: start: 20240310

REACTIONS (7)
  - Periorbital swelling [Unknown]
  - Eye disorder [Recovered/Resolved]
  - Food allergy [Unknown]
  - Eczema [Unknown]
  - Pruritus [Unknown]
  - Dry eye [Unknown]
  - Astigmatism [Unknown]

NARRATIVE: CASE EVENT DATE: 20240101
